FAERS Safety Report 5946251-6 (Version None)
Quarter: 2008Q4

REPORT INFORMATION
  Report Type: 
  Country: None (occurrence: None)
  Receive Date: 20081110
  Receipt Date: 20081028
  Transmission Date: 20090506
  Serious: Yes (Hospitalization)
  Sender: FDA-Public Use
  Company Number: IN-ROCHE-592679

PATIENT
  Sex: Male
  Weight: 68 kg

DRUGS (8)
  1. MYCOPHENOLATE MOFETIL [Suspect]
     Indication: RENAL TRANSPLANT
     Route: 048
     Dates: start: 20031225, end: 20080123
  2. MYCOPHENOLATE MOFETIL [Suspect]
     Route: 048
     Dates: start: 20080124
  3. CYCLOSPORINE [Suspect]
     Indication: RENAL TRANSPLANT
     Route: 065
     Dates: start: 19940916, end: 19940918
  4. CYCLOSPORINE [Suspect]
     Route: 065
     Dates: start: 19940919
  5. CYCLOSPORINE [Suspect]
     Route: 065
  6. CYCLOSPORINE [Suspect]
     Route: 065
     Dates: end: 20080125
  7. DIGENE GEL [Concomitant]
     Indication: PROPHYLAXIS
     Dosage: LIQUID DIGENE. STRENGTH AND FORMULATION REPORTED AS 2 TSP.
     Route: 048
     Dates: start: 20080122, end: 20080125
  8. PANTOCID [Concomitant]
     Indication: PROPHYLAXIS
     Dosage: INJECTION PANTOCID
     Route: 042
     Dates: start: 20080122, end: 20080123

REACTIONS (1)
  - GRAFT DYSFUNCTION [None]
